FAERS Safety Report 8533601-X (Version None)
Quarter: 2012Q3

REPORT INFORMATION
  Report Type: 
  Country: None (occurrence: None)
  Receive Date: 20120724
  Receipt Date: 20120719
  Transmission Date: 20120928
  Serious: Yes (Hospitalization, Other)
  Sender: FDA-Public Use
  Company Number: MX-JNJFOC-20120711011

PATIENT
  Age: 26 Year
  Sex: Female
  Weight: 50 kg

DRUGS (3)
  1. ORTHO EVRA [Suspect]
     Indication: CONTRACEPTION
     Dosage: 6 MG NORELGESTROMIN/ 0.6 MG ETHINYL ESTRADIOL
     Route: 062
     Dates: start: 20111201
  2. OMEPRAZOLE [Concomitant]
     Route: 065
  3. AMIKACIN [Concomitant]
     Route: 065

REACTIONS (1)
  - SALMONELLOSIS [None]
